FAERS Safety Report 20833007 (Version 1)
Quarter: 2022Q2

REPORT INFORMATION
  Report Type: Spontaneous
  Country: AR (occurrence: AR)
  Receive Date: 20220516
  Receipt Date: 20220516
  Transmission Date: 20220721
  Serious: Yes (Hospitalization, Other)
  Sender: FDA-Public Use
  Company Number: AR-BoehringerIngelheim-2022-BI-169597

PATIENT
  Age: 85 Year
  Sex: Male

DRUGS (7)
  1. PRADAXA [Suspect]
     Active Substance: DABIGATRAN ETEXILATE MESYLATE
     Indication: Atrial fibrillation
  2. BISACODYL [Suspect]
     Active Substance: BISACODYL
     Indication: Product used for unknown indication
  3. Atorvastatin - ezetimibe 20/10 [Concomitant]
     Indication: Product used for unknown indication
     Dosage: STRENGTH 20/10
  4. Pregabalin 25/50 mg [Concomitant]
     Indication: Product used for unknown indication
     Dosage: STRENGTH: 25/50 MG
  5. Daflon [Concomitant]
     Indication: Product used for unknown indication
  6. OMEPRAZOLE [Concomitant]
     Active Substance: OMEPRAZOLE
     Indication: Product used for unknown indication
  7. Clonazepam 0.5 [Concomitant]
     Indication: Product used for unknown indication
     Dosage: 0,5 AT NIGHT

REACTIONS (2)
  - Spinal cord compression [Recovering/Resolving]
  - Spinal cord neoplasm [Recovering/Resolving]

NARRATIVE: CASE EVENT DATE: 20220508
